FAERS Safety Report 17679904 (Version 1)
Quarter: 2020Q2

REPORT INFORMATION
  Report Type: Report from Study
  Country: EG (occurrence: EG)
  Receive Date: 20200417
  Receipt Date: 20200417
  Transmission Date: 20200714
  Serious: Yes (Other)
  Sender: FDA-Public Use
  Company Number: EG-BAYER-2020-061495

PATIENT
  Age: 17 Year
  Sex: Female

DRUGS (2)
  1. PANADOL [Concomitant]
     Active Substance: ACETAMINOPHEN
     Dosage: 1 DF, QD
  2. BETAFERON [Suspect]
     Active Substance: INTERFERON BETA-1B
     Indication: MULTIPLE SCLEROSIS
     Dosage: UNK UNK, QOD
     Dates: start: 201912

REACTIONS (2)
  - Incorrect dose administered [None]
  - Immunodeficiency [Not Recovered/Not Resolved]

NARRATIVE: CASE EVENT DATE: 202003
